FAERS Safety Report 10227446 (Version 3)
Quarter: 2014Q2

REPORT INFORMATION
  Report Type: Report from Study
  Country: DE (occurrence: DE)
  Receive Date: 20140610
  Receipt Date: 20140619
  Transmission Date: 20141212
  Serious: Yes (Other)
  Sender: FDA-Public Use
  Company Number: PHHY2012DE075790

PATIENT
  Age: 44 Year
  Sex: Female
  Weight: 66 kg

DRUGS (3)
  1. FTY 720 [Suspect]
     Indication: MULTIPLE SCLEROSIS
     Dosage: 0.5 MG, QD
     Route: 048
     Dates: start: 20110705
  2. TOPIRAMATE [Concomitant]
     Indication: MIGRAINE
     Dosage: 50 MG, QD
     Route: 048
     Dates: start: 20120113
  3. DESOGESTREL [Concomitant]
     Dosage: 0.075 MG, UNK
     Dates: start: 20131115

REACTIONS (5)
  - Lymphopenia [Unknown]
  - Transaminases increased [Not Recovered/Not Resolved]
  - Oral pain [Not Recovered/Not Resolved]
  - Diarrhoea [Not Recovered/Not Resolved]
  - Weight decreased [Not Recovered/Not Resolved]
